FAERS Safety Report 7736428-1 (Version None)
Quarter: 2011Q3

REPORT INFORMATION
  Report Type: 
  Country: None (occurrence: None)
  Receive Date: 20110908
  Receipt Date: 20110826
  Transmission Date: 20111222
  Serious: Yes (Other)
  Sender: FDA-Public Use
  Company Number: DE-RANBAXY-2011R1-44353

PATIENT
  Sex: Male

DRUGS (1)
  1. AMOXICILLIN [Suspect]
     Indication: DENTAL IMPLANTATION
     Dosage: 1000 MG, QD
     Route: 048

REACTIONS (3)
  - LIP OEDEMA [None]
  - SKIN TIGHTNESS [None]
  - SWELLING FACE [None]
